FAERS Safety Report 23922434 (Version 2)
Quarter: 2024Q3

REPORT INFORMATION
  Report Type: Spontaneous
  Country: US (occurrence: None)
  Receive Date: 20240531
  Receipt Date: 20240830
  Transmission Date: 20241016
  Serious: Yes (Death, Other)
  Sender: AXSOME THERAPEUTICS
  Company Number: US-ARIS GLOBAL-AXS202405-000547

PATIENT
  Age: 38 Year
  Sex: Female

DRUGS (5)
  1. AUVELITY [Suspect]
     Active Substance: BUPROPION HYDROCHLORIDE\DEXTROMETHORPHAN HYDROBROMIDE
     Indication: Mixed anxiety and depressive disorder
     Route: 048
     Dates: start: 20230920, end: 20230922
  2. AUVELITY [Suspect]
     Active Substance: BUPROPION HYDROCHLORIDE\DEXTROMETHORPHAN HYDROBROMIDE
     Route: 048
     Dates: start: 20230923, end: 20240417
  3. STRATTERA [Concomitant]
     Active Substance: ATOMOXETINE HYDROCHLORIDE
     Indication: Product used for unknown indication
     Route: 065
     Dates: start: 20240309
  4. NP THYROID [Concomitant]
     Active Substance: LEVOTHYROXINE\LIOTHYRONINE
     Indication: Product used for unknown indication
     Route: 065
     Dates: start: 20240325
  5. BUSPIRONE [Concomitant]
     Active Substance: BUSPIRONE HYDROCHLORIDE
     Indication: Product used for unknown indication
     Route: 065
     Dates: start: 20240228

REACTIONS (4)
  - Completed suicide [Fatal]
  - Attention deficit hyperactivity disorder [Unknown]
  - COVID-19 [Unknown]
  - Insomnia [Unknown]

NARRATIVE: CASE EVENT DATE: 20240205
